FAERS Safety Report 10349154 (Version 1)
Quarter: 2014Q3

REPORT INFORMATION
  Report Type: Spontaneous
  Country: US (occurrence: US)
  Receive Date: 20140730
  Receipt Date: 20140730
  Transmission Date: 20150326
  Serious: Yes (Other)
  Sender: FDA-Public Use
  Company Number: US-AMGEN-USASP2014056563

PATIENT
  Age: 61 Year
  Sex: Male
  Weight: 129.25 kg

DRUGS (1)
  1. ENBREL [Suspect]
     Active Substance: ETANERCEPT
     Indication: PSORIASIS
     Dosage: 50 MG, 2 TIMES/WK
     Route: 058
     Dates: start: 200711, end: 2014

REACTIONS (4)
  - Elbow operation [Unknown]
  - Therapeutic response decreased [Unknown]
  - Bronchitis [Unknown]
  - Hernia [Unknown]
